FAERS Safety Report 25602289 (Version 1)
Quarter: 2025Q3

REPORT INFORMATION
  Report Type: Spontaneous
  Country: US (occurrence: US)
  Receive Date: 20250724
  Receipt Date: 20250724
  Transmission Date: 20251021
  Serious: No
  Sender: VERTEX
  Company Number: US-VERTEX PHARMACEUTICALS-2025-011850

PATIENT
  Age: 13 Year
  Sex: Female

DRUGS (1)
  1. CASGEVY [Suspect]
     Active Substance: EXAGAMGLOGENE AUTOTEMCEL
     Indication: Product used for unknown indication
     Route: 042
     Dates: start: 20250714, end: 20250715

REACTIONS (1)
  - Haematological infection [Recovering/Resolving]

NARRATIVE: CASE EVENT DATE: 20250714
